FAERS Safety Report 13438947 (Version 1)
Quarter: 2017Q2

REPORT INFORMATION
  Report Type: Spontaneous
  Country: US (occurrence: US)
  Receive Date: 20170413
  Receipt Date: 20170413
  Transmission Date: 20170830
  Serious: No
  Sender: FDA-Public Use
  Company Number: US-ROCHE-1528690

PATIENT
  Sex: Female

DRUGS (24)
  1. HUMULIN R [Concomitant]
     Active Substance: INSULIN HUMAN
     Dosage: (CONCENTRATED) 500 UNIT/ML SOLN
     Route: 058
  2. LISINOPRIL. [Concomitant]
     Active Substance: LISINOPRIL
     Route: 065
  3. ROXICODONE [Concomitant]
     Active Substance: OXYCODONE HYDROCHLORIDE
     Indication: MYALGIA
  4. ROCEPHIN [Suspect]
     Active Substance: CEFTRIAXONE SODIUM
     Indication: PRODUCT USED FOR UNKNOWN INDICATION
     Dosage: SOLUTION RECONSTITUTED
     Route: 065
     Dates: start: 20070313
  5. ATORVASTATIN CALCIUM. [Concomitant]
     Active Substance: ATORVASTATIN CALCIUM
     Route: 065
  6. OFLOXACIN. [Concomitant]
     Active Substance: OFLOXACIN
     Route: 048
  7. SINGULAIR [Concomitant]
     Active Substance: MONTELUKAST SODIUM
     Route: 048
  8. ADVAIR HFA [Concomitant]
     Active Substance: FLUTICASONE PROPIONATE\SALMETEROL XINAFOATE
     Dosage: USE AS DIRECTED
     Route: 065
  9. ROXICODONE [Concomitant]
     Active Substance: OXYCODONE HYDROCHLORIDE
     Indication: PAIN
     Dosage: PER 5-6 HRS
     Route: 048
  10. FENTANYL. [Concomitant]
     Active Substance: FENTANYL
     Indication: RHEUMATOID ARTHRITIS
     Dosage: 50 MCG/HR P172, ONE PATCH PER 72 HRS
     Route: 065
  11. IPRATROPIUM BROMIDE. [Concomitant]
     Active Substance: IPRATROPIUM BROMIDE
     Dosage: 0.02 % SOLUTION. 30 DAYS, 8 REFILLS, 1 VIAL NEBULIZED
     Route: 065
  12. ALBUTEROL SULFATE. [Concomitant]
     Active Substance: ALBUTEROL SULFATE
     Dosage: 2.5 MG/3ML; 0.083% NEBULIZER
     Route: 065
  13. CARISOPRODOL. [Concomitant]
     Active Substance: CARISOPRODOL
     Indication: CONNECTIVE TISSUE DISORDER
     Dosage: 3-4 TIMES DAILY.
     Route: 048
  14. ETHYL CHLORIDE [Concomitant]
     Active Substance: ETHYL CHLORIDE
     Route: 065
     Dates: start: 20070522
  15. TWINJECT AUTO-INJECTOR [Concomitant]
     Indication: ASTHMA
     Dosage: 0.15 MG/0.15 ML
     Route: 065
  16. PANTOPRAZOLE SODIUM. [Concomitant]
     Active Substance: PANTOPRAZOLE SODIUM
     Route: 065
  17. VITAMIN D2 [Concomitant]
     Active Substance: ERGOCALCIFEROL
     Dosage: 50000 UNITS
     Route: 048
  18. NOVOLIN R [Concomitant]
     Active Substance: INSULIN HUMAN
     Indication: TYPE 2 DIABETES MELLITUS
     Dosage: }200 30 UNITS AND }250 AND 40 UNITS EACH MEAL
     Route: 065
  19. ENBREL [Concomitant]
     Active Substance: ETANERCEPT
     Dosage: 50 MG/ML SOLN
     Route: 058
  20. LEVOTHYROXINE SODIUM. [Concomitant]
     Active Substance: LEVOTHYROXINE SODIUM
     Indication: HYPOTHYROIDISM
     Route: 065
     Dates: start: 20141209
  21. LYRICA [Concomitant]
     Active Substance: PREGABALIN
     Route: 065
  22. PROAIR HFA [Concomitant]
     Active Substance: ALBUTEROL SULFATE
     Dosage: 108 (90) BASE; MCG/ACT AERS,  USE AS DIRECTED 2 PUFFS
     Route: 065
  23. ROXICODONE [Concomitant]
     Active Substance: OXYCODONE HYDROCHLORIDE
     Indication: MYOSITIS
  24. PENICILLIN V [Concomitant]
     Active Substance: PENICILLIN V
     Route: 065
     Dates: start: 20130506

REACTIONS (1)
  - Hypersensitivity [Unknown]
